FAERS Safety Report 5832344-0 (Version None)
Quarter: 2008Q3

REPORT INFORMATION
  Report Type: 
  Country: None (occurrence: None)
  Receive Date: 20080804
  Receipt Date: 20080728
  Transmission Date: 20090109
  Serious: Yes (Hospitalization)
  Sender: FDA-Public Use
  Company Number: B0531625A

PATIENT
  Age: 25 Year
  Sex: Female

DRUGS (1)
  1. SERETIDE DISKUS [Suspect]
     Indication: ASTHMA
     Route: 055
     Dates: start: 20080106, end: 20080106

REACTIONS (4)
  - CHEST DISCOMFORT [None]
  - DISCOMFORT [None]
  - TACHYCARDIA [None]
  - TREMOR [None]
